FAERS Safety Report 12549655 (Version 1)
Quarter: 2016Q3

REPORT INFORMATION
  Report Type: Spontaneous
  Country: US (occurrence: US)
  Receive Date: 20160712
  Receipt Date: 20160712
  Transmission Date: 20161109
  Serious: No
  Sender: FDA-Public Use
  Company Number: US-BEH-2016071002

PATIENT
  Sex: Male
  Weight: 92.52 kg

DRUGS (21)
  1. DIPHENHYDRAMINE. [Concomitant]
     Active Substance: DIPHENHYDRAMINE
  2. LIDOCAINE/PRILOCAINE [Concomitant]
     Active Substance: LIDOCAINE\PRILOCAINE
  3. PREDNISONE. [Concomitant]
     Active Substance: PREDNISONE
  4. CLOBETASOL [Concomitant]
     Active Substance: CLOBETASOL
  5. NORMAL SALINE [Concomitant]
     Active Substance: SODIUM CHLORIDE
  6. OXYGEN. [Concomitant]
     Active Substance: OXYGEN
  7. NICORETTE [Concomitant]
     Active Substance: NICOTINE
  8. MULTIVITAMIN                       /00097801/ [Concomitant]
     Active Substance: VITAMINS
  9. IPRATROPIUM/ALBUTEROL [Concomitant]
     Active Substance: ALBUTEROL\IPRATROPIUM
  10. MOMETASONE [Concomitant]
     Active Substance: MOMETASONE
  11. SPIRIVA [Concomitant]
     Active Substance: TIOTROPIUM BROMIDE MONOHYDRATE
  12. SODIUM CHLORIDE. [Concomitant]
     Active Substance: SODIUM CHLORIDE
  13. SPIRIVA [Concomitant]
     Active Substance: TIOTROPIUM BROMIDE MONOHYDRATE
  14. ZEMAIRA [Suspect]
     Active Substance: .ALPHA.1-PROTEINASE INHIBITOR HUMAN
     Indication: ALPHA-1 ANTI-TRYPSIN DEFICIENCY
     Dosage: 60 MG/KG, QW
     Route: 042
  15. ALLOPURINOL. [Concomitant]
     Active Substance: ALLOPURINOL
  16. AZITHROMYCIN ANHYDROUS. [Concomitant]
     Active Substance: AZITHROMYCIN ANHYDROUS
  17. EPIPEN [Concomitant]
     Active Substance: EPINEPHRINE
  18. NORCO [Concomitant]
     Active Substance: ACETAMINOPHEN\HYDROCODONE BITARTRATE
  19. LOTEMAX [Concomitant]
     Active Substance: LOTEPREDNOL ETABONATE
  20. ADVAIR HFA [Concomitant]
     Active Substance: FLUTICASONE PROPIONATE\SALMETEROL XINAFOATE
  21. PROAIR HFA [Concomitant]
     Active Substance: ALBUTEROL SULFATE

REACTIONS (1)
  - Oropharyngeal pain [Recovered/Resolved]
